FAERS Safety Report 16766150 (Version 1)
Quarter: 2019Q3

REPORT INFORMATION
  Report Type: Spontaneous
  Country: IT (occurrence: IT)
  Receive Date: 20190903
  Receipt Date: 20190903
  Transmission Date: 20191005
  Serious: Yes (Other)
  Sender: FDA-Public Use
  Company Number: IT-CELGENEUS-ITA-20190808583

PATIENT
  Age: 62 Year
  Sex: Female

DRUGS (4)
  1. OTEZLA [Suspect]
     Active Substance: APREMILAST
     Indication: PSORIASIS
     Dosage: 60 MILLIGRAM
     Route: 048
  2. DACLATASVIR. [Concomitant]
     Active Substance: DACLATASVIR
     Indication: CHRONIC HEPATITIS C
     Route: 065
  3. SOFOSBUVIR [Concomitant]
     Active Substance: SOFOSBUVIR
     Indication: CHRONIC HEPATITIS C
     Route: 065
  4. PARACETAMOL [Suspect]
     Active Substance: ACETAMINOPHEN
     Indication: HEADACHE
     Route: 065

REACTIONS (2)
  - Drug interaction [Unknown]
  - Symmetrical drug-related intertriginous and flexural exanthema [Unknown]
